FAERS Safety Report 14616039 (Version 1)
Quarter: 2018Q1

REPORT INFORMATION
  Report Type: Spontaneous
  Country: FR (occurrence: FR)
  Receive Date: 20180309
  Receipt Date: 20180309
  Transmission Date: 20180509
  Serious: Yes (Life-Threatening, Hospitalization)
  Sender: FDA-Public Use
  Company Number: FR-BAXTER-2018BAX007328

PATIENT
  Age: 61 Year
  Sex: Female
  Weight: 60 kg

DRUGS (9)
  1. CHLORURE DE SODIUM A 0,9 POUR CENT BAXTER, SOLUTION POUR PERFUSION EN [Suspect]
     Active Substance: SODIUM CHLORIDE
     Indication: PRODUCT USED FOR UNKNOWN INDICATION
     Route: 042
     Dates: start: 20171130, end: 20171201
  2. ZYVOXID [Suspect]
     Active Substance: LINEZOLID
     Indication: INTERSTITIAL LUNG DISEASE
     Route: 048
     Dates: start: 20171129, end: 20171203
  3. COSOPT [Concomitant]
     Active Substance: DORZOLAMIDE HYDROCHLORIDE\TIMOLOL MALEATE
     Indication: PRODUCT USED FOR UNKNOWN INDICATION
     Route: 047
  4. PIPERACILLINE BASE [Suspect]
     Active Substance: PIPERACILLIN SODIUM
     Indication: INTERSTITIAL LUNG DISEASE
     Route: 042
     Dates: start: 20171106, end: 20171204
  5. IOPIDINE [Concomitant]
     Active Substance: APRACLONIDINE HYDROCHLORIDE
     Indication: PRODUCT USED FOR UNKNOWN INDICATION
     Route: 047
  6. INNOHEP [Suspect]
     Active Substance: TINZAPARIN SODIUM
     Indication: THROMBOSIS PROPHYLAXIS
     Route: 058
     Dates: start: 20171129, end: 20171202
  7. TAZOBACTAM [Suspect]
     Active Substance: TAZOBACTAM
     Indication: INTERSTITIAL LUNG DISEASE
     Route: 042
     Dates: start: 20171106, end: 20171204
  8. DOLIPRANE [Concomitant]
     Active Substance: ACETAMINOPHEN
     Indication: PRODUCT USED FOR UNKNOWN INDICATION
     Route: 048
  9. TERBUTALINE (SULFATE) [Suspect]
     Active Substance: TERBUTALINE SULFATE
     Indication: INTERSTITIAL LUNG DISEASE
     Route: 055
     Dates: start: 20171111, end: 20171205

REACTIONS (1)
  - Toxic epidermal necrolysis [Recovered/Resolved]

NARRATIVE: CASE EVENT DATE: 20171202
